FAERS Safety Report 4367729-5 (Version None)
Quarter: 2004Q2

REPORT INFORMATION
  Report Type: 
  Country: None (occurrence: None)
  Receive Date: 20040527
  Receipt Date: 20040204
  Transmission Date: 20050107
  Serious: Yes (Hospitalization)
  Sender: FDA-Public Use
  Company Number: 358251

PATIENT
  Age: 59 Year
  Sex: Male

DRUGS (2)
  1. LARIAM [Suspect]
     Indication: MALARIA PROPHYLAXIS
     Dosage: ORAL
     Route: 048
     Dates: start: 20030615
  2. PROPRANOLOL [Concomitant]

REACTIONS (1)
  - PSYCHOTIC DISORDER [None]
